FAERS Safety Report 5470211-5 (Version None)
Quarter: 2007Q3

REPORT INFORMATION
  Report Type: 
  Country: None (occurrence: None)
  Receive Date: 20070924
  Receipt Date: 20070917
  Transmission Date: 20080115
  Serious: Yes (Hospitalization)
  Sender: FDA-Public Use
  Company Number: 2007SP017745

PATIENT
  Age: 58 Year
  Sex: Female
  Weight: 115.2136 kg

DRUGS (2)
  1. PEG-INTRON [Suspect]
     Indication: HEPATITIS C
     Dosage: 150 MCG; QW; SC
     Route: 058
     Dates: start: 20070625
  2. RIBAVIRIN [Suspect]
     Indication: HEPATITIS C
     Dosage: 600 MG; BID ;PO
     Route: 048
     Dates: start: 20070625

REACTIONS (13)
  - ABDOMINAL DISTENSION [None]
  - BLOOD POTASSIUM DECREASED [None]
  - CELLULITIS [None]
  - DECREASED APPETITE [None]
  - DRY MOUTH [None]
  - DYSGEUSIA [None]
  - EATING DISORDER [None]
  - ERUCTATION [None]
  - FLATULENCE [None]
  - MEMORY IMPAIRMENT [None]
  - NO THERAPEUTIC RESPONSE [None]
  - NOCTURIA [None]
  - PAIN [None]
